FAERS Safety Report 5592942-9 (Version None)
Quarter: 2008Q1

REPORT INFORMATION
  Report Type: 
  Country: None (occurrence: None)
  Receive Date: 20080116
  Receipt Date: 20080109
  Transmission Date: 20080703
  Serious: Yes (Other)
  Sender: FDA-Public Use
  Company Number: US-JNJFOC-20080102567

PATIENT
  Age: 50 Year
  Sex: Female

DRUGS (4)
  1. REMICADE [Suspect]
     Indication: VASCULITIS
     Dosage: 4 MG/KG
     Route: 042
  2. MTX [Concomitant]
  3. STEROIDS [Concomitant]
  4. IMMUNE GLOBULIN INTRAVENOUS (HUMAN) [Concomitant]

REACTIONS (3)
  - INTESTINAL FUNCTIONAL DISORDER [None]
  - NEUROPATHY PERIPHERAL [None]
  - VASCULITIS [None]
